FAERS Safety Report 12842185 (Version 1)
Quarter: 2016Q4

REPORT INFORMATION
  Report Type: Report from Study
  Country: US (occurrence: US)
  Receive Date: 20161013
  Receipt Date: 20161013
  Transmission Date: 20170207
  Serious: No
  Sender: FDA-Public Use
  Company Number: US-AMGEN-USASL2016131891

PATIENT
  Age: 38 Year
  Sex: Female

DRUGS (3)
  1. ENBREL [Suspect]
     Active Substance: ETANERCEPT
     Indication: SARCOIDOSIS
     Dosage: 50 MG, 2 TIMES/WK
     Route: 065
     Dates: start: 20070104
  2. ENBREL [Suspect]
     Active Substance: ETANERCEPT
     Indication: ERYTHEMA
  3. ENBREL [Suspect]
     Active Substance: ETANERCEPT
     Indication: ERYTHEMA NODOSUM

REACTIONS (2)
  - Off label use [Unknown]
  - Drug dose omission [Unknown]

NARRATIVE: CASE EVENT DATE: 20070104
